FAERS Safety Report 8432701-2 (Version None)
Quarter: 2012Q2

REPORT INFORMATION
  Report Type: 
  Country: None (occurrence: None)
  Receive Date: 20120606
  Receipt Date: 20120507
  Transmission Date: 20120825
  Serious: Yes (Hospitalization, Other)
  Sender: FDA-Public Use
  Company Number: IMP_05886_2012

PATIENT
  Age: 72 Year
  Sex: Female

DRUGS (7)
  1. PANTOPRAZOLE [Suspect]
     Indication: PRODUCT USED FOR UNKNOWN INDICATION
     Dosage: (DF)
  2. METOPROLOL SUCCINATE [Concomitant]
  3. OMEPRAZOLE [Suspect]
     Indication: ANAEMIA
     Dosage: (DF)
  4. METFORMIN HCL [Concomitant]
  5. INSULIN ASPART [Concomitant]
  6. ATORVASTATIN CALCIUM [Concomitant]
  7. TRIAMTERENE AND HYDROCHLOROTHIAZIDE [Concomitant]

REACTIONS (11)
  - RENAL FAILURE [None]
  - OESOPHAGEAL CANDIDIASIS [None]
  - GASTRITIS [None]
  - HYPOGLYCAEMIA [None]
  - MICROCYTIC ANAEMIA [None]
  - PROTEIN URINE PRESENT [None]
  - OEDEMA PERIPHERAL [None]
  - TUBULOINTERSTITIAL NEPHRITIS [None]
  - EOSINOPHILIA [None]
  - ADENOCARCINOMA [None]
  - COLON CANCER [None]
